FAERS Safety Report 7182337-9 (Version None)
Quarter: 2010Q4

REPORT INFORMATION
  Report Type: 
  Country: None (occurrence: None)
  Receive Date: 20101221
  Receipt Date: 20100511
  Transmission Date: 20110411
  Serious: No
  Sender: FDA-Public Use
  Company Number: US-AMGEN-KDL411787

PATIENT

DRUGS (10)
  1. ENBREL [Suspect]
     Indication: PRODUCT USED FOR UNKNOWN INDICATION
     Dosage: 50 MG, QWK
     Route: 058
  2. LISINOPRIL [Concomitant]
     Dosage: 5 MG, UNK
  3. FOLIC ACID [Concomitant]
     Dosage: 1 MG, UNK
  4. ETHAMBUTOL HYDROCHLORIDE [Concomitant]
     Dosage: 400 MG, UNK
  5. FISH OIL [Concomitant]
     Dosage: UNK UNK, UNK
  6. PROCATEROL HCL [Concomitant]
  7. CALCIUM WITH VITAMIN D [Concomitant]
     Dosage: UNK UNK, UNK
  8. MULTI-VITAMINS [Concomitant]
     Dosage: UNK UNK, UNK
  9. ALBUTEROL SULFATE [Concomitant]
     Dosage: 90 A?G, UNK
  10. BUDESONIDE [Concomitant]
     Dosage: 200 A?G, UNK

REACTIONS (2)
  - INJECTION SITE ERYTHEMA [None]
  - INJECTION SITE WARMTH [None]
